FAERS Safety Report 12626887 (Version 1)
Quarter: 2016Q3

REPORT INFORMATION
  Report Type: Spontaneous
  Country: KR (occurrence: KR)
  Receive Date: 20160805
  Receipt Date: 20160805
  Transmission Date: 20161109
  Serious: Yes (Hospitalization)
  Sender: FDA-Public Use
  Company Number: KR-ELI_LILLY_AND_COMPANY-KR201607011410

PATIENT
  Sex: Male

DRUGS (4)
  1. HUMULIN N [Suspect]
     Active Substance: INSULIN HUMAN
     Indication: DIABETES MELLITUS
     Dosage: SLIDING SCALE AT 6 AM
     Route: 065
     Dates: start: 2006
  2. HUMULIN N [Suspect]
     Active Substance: INSULIN HUMAN
     Dosage: SLIDING SCALE AT 6 AM
     Route: 065
     Dates: start: 2006
  3. HUMULIN N [Suspect]
     Active Substance: INSULIN HUMAN
     Dosage: SLIDING SCALE AT 12 PM
     Route: 065
     Dates: start: 2006
  4. HUMULIN N [Suspect]
     Active Substance: INSULIN HUMAN
     Dosage: SLIDING SCALE AT 12 PM
     Route: 065

REACTIONS (7)
  - Cardiac disorder [Unknown]
  - Blood glucose increased [Unknown]
  - Blood glucose decreased [Unknown]
  - Anxiety [Unknown]
  - Altered state of consciousness [Unknown]
  - Fatigue [Unknown]
  - Asthenia [Unknown]
